FAERS Safety Report 11506219 (Version 1)
Quarter: 2015Q3

REPORT INFORMATION
  Report Type: Spontaneous
  Country: US (occurrence: None)
  Receive Date: 20150914
  Receipt Date: 20150914
  Transmission Date: 20151125
  Serious: Yes (Life-Threatening, Hospitalization)
  Sender: FDA-Public Use
  Company Number: None

PATIENT
  Age: 76 Year
  Sex: Female
  Weight: 97 kg

DRUGS (39)
  1. HEPARIN [Suspect]
     Active Substance: HEPARIN SODIUM
     Indication: MITRAL VALVE REPAIR
     Dosage: 10,000 UNITS/10 ML
     Route: 042
     Dates: start: 20150625, end: 20150625
  2. FUROSEMIDE. [Concomitant]
     Active Substance: FUROSEMIDE
  3. METOCLOPRAMIDE. [Concomitant]
     Active Substance: METOCLOPRAMIDE
  4. ALUMINUM-MAGNESIUM HYDROXIDE-SIMETHICONE [Concomitant]
  5. METOPROLOL TARTRATE. [Concomitant]
     Active Substance: METOPROLOL TARTRATE
  6. KLOR-CON [Concomitant]
     Active Substance: POTASSIUM CHLORIDE
  7. ALBUTEROL-IPRATROPIUM [Concomitant]
  8. ALUMINUM-MAGNESIUM HYDROXIDE-SIMETHICONE [Concomitant]
  9. INSULIN [Concomitant]
     Active Substance: INSULIN NOS
  10. MULTIVITAMIN (THERAGRAN) [Concomitant]
  11. SODIUM BICARBONATE. [Concomitant]
     Active Substance: SODIUM BICARBONATE
  12. HEPARIN W/PROTAMINE [Concomitant]
  13. CALCIUM CARBONATE. [Concomitant]
     Active Substance: CALCIUM CARBONATE
  14. FONDAPARINUX [Concomitant]
     Active Substance: FONDAPARINUX
  15. ALBUMIN HUMAN 5% [Concomitant]
  16. ATORVASTATIN [Concomitant]
     Active Substance: ATORVASTATIN
  17. BACTROBAN [Concomitant]
     Active Substance: MUPIROCIN\MUPIROCIN CALCIUM
  18. VERAPAMIL CR [Concomitant]
  19. ALTEPLASE [Concomitant]
     Active Substance: ALTEPLASE
  20. ARGATROBAN. [Concomitant]
     Active Substance: ARGATROBAN
  21. CLOPIDOGREL [Concomitant]
     Active Substance: CLOPIDOGREL BISULFATE
  22. NORCO [Concomitant]
     Active Substance: ACETAMINOPHEN\HYDROCODONE BITARTRATE
  23. PANTOPRAZOLE EC [Concomitant]
  24. ALPRAZOLAM. [Concomitant]
     Active Substance: ALPRAZOLAM
  25. AMIODARONE [Concomitant]
     Active Substance: AMIODARONE
  26. FLUOXETINE [Concomitant]
     Active Substance: FLUOXETINE\FLUOXETINE HYDROCHLORIDE
  27. HEPARIN [Suspect]
     Active Substance: HEPARIN SODIUM
     Indication: CARDIAC OPERATION
     Dosage: 10,000 UNITS/10 ML
     Route: 042
     Dates: start: 20150625, end: 20150625
  28. ASPIRIN EC [Concomitant]
     Active Substance: ASPIRIN
  29. CLOPIDOGREL [Concomitant]
     Active Substance: CLOPIDOGREL BISULFATE
  30. SALINE INFUSION [Concomitant]
  31. DOCUSATE [Concomitant]
     Active Substance: DOCUSATE
  32. LACTATED RINGERS [Concomitant]
     Active Substance: CALCIUM CHLORIDE\POTASSIUM CHLORIDE\SODIUM CHLORIDE\SODIUM LACTATE
  33. PHENYLEPHRINE INFUSION [Concomitant]
  34. FOLIC ACID. [Concomitant]
     Active Substance: FOLIC ACID
  35. HEPARIN [Suspect]
     Active Substance: HEPARIN SODIUM
     Indication: MYOMECTOMY
     Dosage: 10,000 UNITS/10 ML
     Route: 042
     Dates: start: 20150625, end: 20150625
  36. CEFAZOLIN [Concomitant]
     Active Substance: CEFAZOLIN
  37. MORPHINE [Concomitant]
     Active Substance: MORPHINE
  38. ASPIRIN. [Concomitant]
     Active Substance: ASPIRIN
  39. BUMETANIDE. [Concomitant]
     Active Substance: BUMETANIDE

REACTIONS (4)
  - Pulmonary embolism [None]
  - Thrombosis [None]
  - Condition aggravated [None]
  - Heparin-induced thrombocytopenia [None]

NARRATIVE: CASE EVENT DATE: 20150707
